FAERS Safety Report 8814556 (Version 2)
Quarter: 2012Q4

REPORT INFORMATION
  Report Type: 
  Country: US (occurrence: US)
  Receive Date: 20120928
  Receipt Date: 20121009
  Transmission Date: 20130627
  Serious: No
  Sender: FDA-Public Use
  Company Number: US-TEVA-361625USA

PATIENT
  Age: 27 None
  Sex: Female
  Weight: 47.67 kg

DRUGS (3)
  1. PLAN B ONE-STEP [Suspect]
     Indication: POST COITAL CONTRACEPTION
     Dosage: 1.5 Milligram Daily;
     Route: 048
     Dates: start: 20120917, end: 20120917
  2. VIIBRYD [Concomitant]
     Indication: DEPRESSION
  3. XANAX [Concomitant]
     Indication: ANXIETY

REACTIONS (2)
  - Menstruation irregular [Recovered/Resolved]
  - Breast tenderness [Not Recovered/Not Resolved]
